FAERS Safety Report 20069016 (Version 4)
Quarter: 2022Q2

REPORT INFORMATION
  Report Type: Spontaneous
  Country: US (occurrence: US)
  Receive Date: 20211115
  Receipt Date: 20220404
  Transmission Date: 20220721
  Serious: Yes (Hospitalization, Other)
  Sender: FDA-Public Use
  Company Number: US-MLMSERVICE-20211103-3200752-1

PATIENT
  Age: 43 Year
  Sex: Female

DRUGS (3)
  1. HEPARIN SODIUM [Suspect]
     Active Substance: HEPARIN SODIUM
     Indication: Apheresis
     Dosage: UNK
     Route: 042
  2. HEPARIN SODIUM [Suspect]
     Active Substance: HEPARIN SODIUM
     Dosage: UNFRACTIONATED HEPARIN FLUSHES
  3. FILGRASTIM [Concomitant]
     Active Substance: FILGRASTIM
     Indication: Stem cell transplant
     Dosage: UNK

REACTIONS (4)
  - Jugular vein thrombosis [Recovered/Resolved]
  - Deep vein thrombosis [Recovered/Resolved]
  - Pulmonary embolism [Recovered/Resolved]
  - Heparin-induced thrombocytopenia [Recovered/Resolved]
